FAERS Safety Report 7660488-X (Version None)
Quarter: 2011Q3

REPORT INFORMATION
  Report Type: 
  Country: None (occurrence: None)
  Receive Date: 20110805
  Receipt Date: 20110801
  Transmission Date: 20111222
  Serious: Yes (Life-Threatening, Hospitalization, Other)
  Sender: FDA-Public Use
  Company Number: US-ASTRAZENECA-2011SE34955

PATIENT
  Age: 18469 Day
  Sex: Female

DRUGS (7)
  1. LITHIUM CARBONATE [Suspect]
     Indication: BIPOLAR DISORDER
     Route: 065
     Dates: start: 20050308, end: 20110531
  2. DEPAKOTE [Concomitant]
     Dates: start: 20020808, end: 20110418
  3. FLUOXETINE [Concomitant]
     Dates: start: 20030922
  4. PROZAC [Concomitant]
     Dates: start: 20020808
  5. SEROQUEL [Suspect]
     Route: 048
     Dates: start: 20100621, end: 20110531
  6. SEROQUEL [Suspect]
     Indication: BIPOLAR DISORDER
     Dosage: 100 MG- 300 MG
     Route: 048
     Dates: start: 20000201, end: 20090101
  7. SYNTHROID [Concomitant]
     Dates: start: 20051108

REACTIONS (5)
  - VENTRICULAR TACHYCARDIA [None]
  - TREMOR [None]
  - RASH [None]
  - SOMNOLENCE [None]
  - NERVOUSNESS [None]
